FAERS Safety Report 10090274 (Version 1)
Quarter: 2014Q2

REPORT INFORMATION
  Report Type: Spontaneous
  Country: FR (occurrence: FR)
  Receive Date: 20140421
  Receipt Date: 20140421
  Transmission Date: 20141212
  Serious: Yes (Other)
  Sender: FDA-Public Use
  Company Number: FR-BRISTOL-MYERS SQUIBB COMPANY-20615555

PATIENT
  Age: 75 Year
  Sex: Male

DRUGS (3)
  1. REYATAZ CAPS [Suspect]
     Indication: HIV INFECTION
     Route: 048
  2. TRUVADA [Suspect]
     Indication: HIV INFECTION
     Route: 048
     Dates: end: 20131022
  3. NORVIR [Concomitant]
     Indication: HIV INFECTION

REACTIONS (1)
  - Fanconi syndrome acquired [Unknown]
